FAERS Safety Report 9940953 (Version 1)
Quarter: 2014Q1

REPORT INFORMATION
  Report Type: Spontaneous
  Country: US (occurrence: US)
  Receive Date: 20140303
  Receipt Date: 20140303
  Transmission Date: 20141002
  Serious: No
  Sender: FDA-Public Use
  Company Number: US-PFIZER INC-2014055654

PATIENT
  Sex: 0

DRUGS (3)
  1. GLIPIZIDE [Suspect]
     Dosage: UNK
  2. LANTUS [Suspect]
     Dosage: UNK
  3. NOVOLOG FLEXPENS [Suspect]
     Dosage: UNK

REACTIONS (2)
  - Blood pressure fluctuation [Unknown]
  - Weight fluctuation [Unknown]
